FAERS Safety Report 23507364 (Version 10)
Quarter: 2025Q2

REPORT INFORMATION
  Report Type: Spontaneous
  Country: FI (occurrence: FI)
  Receive Date: 20240209
  Receipt Date: 20250513
  Transmission Date: 20250717
  Serious: Yes (Life-Threatening, Hospitalization, Other)
  Sender: BAXTER
  Company Number: FI-BAXTER-2024BAX011626

PATIENT
  Age: 70 Year
  Sex: Female
  Weight: 96 kg

DRUGS (85)
  1. IFOSFAMIDE [Suspect]
     Active Substance: IFOSFAMIDE
     Indication: Diffuse large B-cell lymphoma stage II
     Route: 042
     Dates: start: 20231213, end: 20231214
  2. IFOSFAMIDE [Suspect]
     Active Substance: IFOSFAMIDE
     Route: 042
     Dates: start: 20240103, end: 20240104
  3. IFOSFAMIDE [Suspect]
     Active Substance: IFOSFAMIDE
     Route: 042
     Dates: start: 20240124, end: 20240125
  4. CYCLOPHOSPHAMIDE [Suspect]
     Active Substance: CYCLOPHOSPHAMIDE
     Indication: Product used for unknown indication
     Route: 065
     Dates: start: 20230928, end: 20231109
  5. DOXORUBICIN [Suspect]
     Active Substance: DOXORUBICIN
     Route: 065
     Dates: start: 20230928, end: 20231109
  6. EPCORITAMAB [Suspect]
     Active Substance: EPCORITAMAB
     Indication: Diffuse large B-cell lymphoma stage II
     Route: 058
     Dates: start: 20231214, end: 20231214
  7. EPCORITAMAB [Suspect]
     Active Substance: EPCORITAMAB
     Route: 058
     Dates: start: 20231221, end: 20231221
  8. EPCORITAMAB [Suspect]
     Active Substance: EPCORITAMAB
     Route: 058
     Dates: start: 20231228
  9. EPCORITAMAB [Suspect]
     Active Substance: EPCORITAMAB
     Route: 058
     Dates: start: 20240104
  10. EPCORITAMAB [Suspect]
     Active Substance: EPCORITAMAB
     Route: 065
     Dates: start: 20240111
  11. EPCORITAMAB [Suspect]
     Active Substance: EPCORITAMAB
     Route: 058
     Dates: start: 20240118
  12. EPCORITAMAB [Suspect]
     Active Substance: EPCORITAMAB
     Route: 058
     Dates: start: 20240125
  13. CARBOPLATIN [Suspect]
     Active Substance: CARBOPLATIN
     Indication: Diffuse large B-cell lymphoma stage II
     Route: 042
     Dates: start: 20231213, end: 20240103
  14. CARBOPLATIN [Suspect]
     Active Substance: CARBOPLATIN
     Route: 042
     Dates: start: 20240124, end: 20240124
  15. CARBOPLATIN [Suspect]
     Active Substance: CARBOPLATIN
     Indication: Diffuse large B-cell lymphoma stage II
     Route: 042
     Dates: start: 20240124, end: 20240124
  16. ETOPOSIDE [Suspect]
     Active Substance: ETOPOSIDE
     Indication: Diffuse large B-cell lymphoma stage II
     Route: 042
     Dates: start: 20231212, end: 20231214
  17. ETOPOSIDE [Suspect]
     Active Substance: ETOPOSIDE
     Route: 042
     Dates: start: 20240102, end: 20240104
  18. ETOPOSIDE [Suspect]
     Active Substance: ETOPOSIDE
     Route: 042
     Dates: start: 20240123, end: 20240125
  19. ETOPOSIDE [Suspect]
     Active Substance: ETOPOSIDE
     Indication: Diffuse large B-cell lymphoma stage II
     Route: 042
     Dates: start: 20240102, end: 20240104
  20. ETOPOSIDE [Suspect]
     Active Substance: ETOPOSIDE
     Route: 042
     Dates: start: 20240123, end: 20240125
  21. RITUXIMAB [Suspect]
     Active Substance: RITUXIMAB
     Indication: Diffuse large B-cell lymphoma stage II
     Route: 042
     Dates: start: 20231212, end: 20240123
  22. RITUXIMAB [Suspect]
     Active Substance: RITUXIMAB
     Route: 042
     Dates: start: 20231212, end: 20240102
  23. RITUXIMAB [Suspect]
     Active Substance: RITUXIMAB
     Route: 042
     Dates: start: 20240123, end: 20240123
  24. LEVOTHYROXINE [Concomitant]
     Active Substance: LEVOTHYROXINE
     Indication: Product used for unknown indication
     Route: 065
     Dates: start: 20230921
  25. LEVOTHYROXINE [Concomitant]
     Active Substance: LEVOTHYROXINE
     Route: 065
     Dates: start: 20201109
  26. LEVOTHYROXINE [Concomitant]
     Active Substance: LEVOTHYROXINE
     Indication: Product used for unknown indication
     Route: 065
     Dates: start: 20230921
  27. LEVOTHYROXINE [Concomitant]
     Active Substance: LEVOTHYROXINE
     Route: 065
     Dates: start: 20201109
  28. LEVOTHYROXINE [Concomitant]
     Active Substance: LEVOTHYROXINE
     Route: 065
     Dates: start: 20201109
  29. PANADOL [Concomitant]
     Active Substance: ACETAMINOPHEN
     Indication: Product used for unknown indication
     Route: 065
     Dates: start: 20230928
  30. PANADOL [Concomitant]
     Active Substance: ACETAMINOPHEN
     Route: 065
     Dates: start: 20230929
  31. PANADOL [Concomitant]
     Active Substance: ACETAMINOPHEN
     Route: 065
     Dates: start: 20240104, end: 20240104
  32. PANADOL [Concomitant]
     Active Substance: ACETAMINOPHEN
     Route: 065
     Dates: start: 20240126
  33. Hicet [Concomitant]
     Indication: Premedication
     Route: 048
     Dates: start: 20240104, end: 20240104
  34. Hicet [Concomitant]
     Route: 048
     Dates: start: 20240111
  35. Hicet [Concomitant]
     Route: 048
     Dates: start: 20240118
  36. Hicet [Concomitant]
     Route: 048
     Dates: start: 20240125
  37. FUROSEMIDE [Concomitant]
     Active Substance: FUROSEMIDE
     Route: 065
     Dates: start: 20231212, end: 20241129
  38. OXAZEPAM [Concomitant]
     Active Substance: OXAZEPAM
     Route: 065
     Dates: start: 20231204
  39. ARANESP [Concomitant]
     Active Substance: DARBEPOETIN ALFA
     Route: 065
     Dates: start: 20231222, end: 20240222
  40. ACETAMINOPHEN [Concomitant]
     Active Substance: ACETAMINOPHEN
     Indication: Premedication
     Route: 048
     Dates: start: 20240104, end: 20240104
  41. ACETAMINOPHEN [Concomitant]
     Active Substance: ACETAMINOPHEN
     Route: 048
     Dates: start: 20240111, end: 20240111
  42. ACETAMINOPHEN [Concomitant]
     Active Substance: ACETAMINOPHEN
     Route: 048
     Dates: start: 20240118, end: 20240118
  43. ACETAMINOPHEN [Concomitant]
     Active Substance: ACETAMINOPHEN
     Route: 048
     Dates: start: 20240125
  44. HYDROCORTISONE [Concomitant]
     Active Substance: HYDROCORTISONE
     Route: 065
     Dates: start: 20231218, end: 20240307
  45. HYDROCORTISONE [Concomitant]
     Active Substance: HYDROCORTISONE
     Route: 065
     Dates: start: 20240104
  46. PANTOPRAZOLE SODIUM [Concomitant]
     Active Substance: PANTOPRAZOLE SODIUM
     Route: 065
     Dates: start: 20230925, end: 20240307
  47. ENOXAPARIN SODIUM [Concomitant]
     Active Substance: ENOXAPARIN SODIUM
     Indication: Product used for unknown indication
     Route: 065
     Dates: start: 20230925, end: 20231218
  48. ENOXAPARIN SODIUM [Concomitant]
     Active Substance: ENOXAPARIN SODIUM
     Route: 065
     Dates: start: 20230925, end: 20240320
  49. ENOXAPARIN SODIUM [Concomitant]
     Active Substance: ENOXAPARIN SODIUM
     Route: 065
     Dates: start: 20230925
  50. DIFLUCAN [Concomitant]
     Active Substance: FLUCONAZOLE
     Indication: Product used for unknown indication
     Route: 065
     Dates: start: 20231222, end: 20231229
  51. NYSTATIN [Concomitant]
     Active Substance: NYSTATIN
     Indication: Product used for unknown indication
     Route: 065
     Dates: start: 20231222, end: 20240222
  52. NYSTATIN [Concomitant]
     Active Substance: NYSTATIN
     Route: 065
     Dates: start: 20231222, end: 20240222
  53. NYSTATIN [Concomitant]
     Active Substance: NYSTATIN
     Route: 065
     Dates: start: 20231222
  54. CEFUROXIME [Concomitant]
     Active Substance: CEFUROXIME
     Route: 065
     Dates: start: 20231228, end: 20231231
  55. IBUPROFEN [Concomitant]
     Active Substance: IBUPROFEN
     Indication: Product used for unknown indication
     Route: 065
     Dates: start: 20230925, end: 20231230
  56. IBUPROFEN [Concomitant]
     Active Substance: IBUPROFEN
     Route: 065
     Dates: start: 20231229, end: 20231230
  57. FUROSEMIDE [Concomitant]
     Active Substance: FUROSEMIDE
     Route: 065
     Dates: start: 20230925
  58. ONDANSETRON [Concomitant]
     Active Substance: ONDANSETRON
     Route: 065
     Dates: start: 20230925, end: 20241129
  59. POLYETHYLENE GLYCOL 4000 [Concomitant]
     Active Substance: POLYETHYLENE GLYCOL 4000
     Indication: Product used for unknown indication
     Route: 065
     Dates: start: 20230929
  60. Beclomet [Concomitant]
     Route: 065
     Dates: start: 20201209
  61. PRIMPERAN [Concomitant]
     Active Substance: METOCLOPRAMIDE HYDROCHLORIDE
     Route: 065
     Dates: start: 20230925, end: 20241129
  62. CEPHALEXIN [Concomitant]
     Active Substance: CEPHALEXIN
     Route: 065
     Dates: start: 20231231, end: 20240104
  63. SODIUM CHLORIDE [Concomitant]
     Active Substance: SODIUM CHLORIDE
     Route: 065
     Dates: start: 20231212, end: 20240104
  64. SODIUM CHLORIDE [Concomitant]
     Active Substance: SODIUM CHLORIDE
     Route: 065
     Dates: start: 20240102, end: 20240104
  65. ELECTROLYTES NOS [Concomitant]
     Active Substance: ELECTROLYTES NOS
     Route: 065
     Dates: start: 20231228, end: 20231229
  66. DEXAMETHASONE [Concomitant]
     Active Substance: DEXAMETHASONE
     Route: 065
     Dates: start: 20231212, end: 20240103
  67. DEXAMETHASONE [Concomitant]
     Active Substance: DEXAMETHASONE
     Route: 065
     Dates: start: 20240102, end: 20240124
  68. POTASSIUM CHLORIDE [Concomitant]
     Active Substance: POTASSIUM CHLORIDE
     Indication: Product used for unknown indication
     Route: 065
     Dates: start: 20231006, end: 20240215
  69. POTASSIUM CHLORIDE [Concomitant]
     Active Substance: POTASSIUM CHLORIDE
     Route: 065
     Dates: start: 20230928
  70. POTASSIUM CHLORIDE [Concomitant]
     Active Substance: POTASSIUM CHLORIDE
     Route: 065
     Dates: start: 20230828, end: 20240215
  71. Aclovir [Concomitant]
     Indication: Product used for unknown indication
     Route: 065
     Dates: start: 20240111, end: 20240117
  72. VALACYCLOVIR HYDROCHLORIDE [Concomitant]
     Active Substance: VALACYCLOVIR HYDROCHLORIDE
     Indication: Product used for unknown indication
     Route: 065
     Dates: start: 20240118, end: 20240222
  73. ALOXI [Concomitant]
     Active Substance: PALONOSETRON HYDROCHLORIDE
     Route: 065
     Dates: start: 20240125, end: 20240125
  74. PREDNISOLONE [Concomitant]
     Active Substance: PREDNISOLONE
     Indication: Prophylaxis
     Route: 048
     Dates: start: 20231214, end: 20231217
  75. PREDNISOLONE [Concomitant]
     Active Substance: PREDNISOLONE
     Route: 048
     Dates: start: 20231221, end: 20231224
  76. PREDNISOLONE [Concomitant]
     Active Substance: PREDNISOLONE
     Route: 048
     Dates: start: 20231228, end: 20231231
  77. PREDNISOLONE [Concomitant]
     Active Substance: PREDNISOLONE
     Route: 048
     Dates: start: 20240104, end: 20240107
  78. CETIRIZINE HCL [Concomitant]
     Active Substance: CETIRIZINE HYDROCHLORIDE
     Indication: Product used for unknown indication
     Route: 065
     Dates: start: 20240104, end: 20240104
  79. DEXAMETHASONE [Concomitant]
     Active Substance: DEXAMETHASONE
     Route: 065
     Dates: start: 20231212, end: 20240103
  80. DEXAMETHASONE [Concomitant]
     Active Substance: DEXAMETHASONE
     Indication: Prophylaxis
     Route: 048
     Dates: start: 20240102, end: 20240102
  81. DEXAMETHASONE [Concomitant]
     Active Substance: DEXAMETHASONE
     Route: 048
     Dates: start: 20240103, end: 20240103
  82. NYSTATIN [Concomitant]
     Active Substance: NYSTATIN
     Route: 065
     Dates: start: 20231222
  83. PEGFILGRASTIM [Concomitant]
     Active Substance: PEGFILGRASTIM
     Route: 065
     Dates: start: 20230929
  84. MEROPENEM [Concomitant]
     Active Substance: MEROPENEM
     Indication: Product used for unknown indication
     Route: 065
     Dates: start: 20240111, end: 20240128
  85. MEROPENEM [Concomitant]
     Active Substance: MEROPENEM
     Indication: Cytokine release syndrome
     Route: 042
     Dates: start: 20231006, end: 20240215

REACTIONS (9)
  - Cytokine release syndrome [Recovered/Resolved]
  - Neutropenic infection [Recovered/Resolved]
  - Fatigue [Unknown]
  - Pyrexia [Recovered/Resolved]
  - Feeling cold [Unknown]
  - Blister infected [Unknown]
  - Oral herpes [Unknown]
  - Neutropenia [Unknown]
  - Nasal herpes [Unknown]

NARRATIVE: CASE EVENT DATE: 20240111
